FAERS Safety Report 4486151-4 (Version None)
Quarter: 2004Q4

REPORT INFORMATION
  Report Type: 
  Country: None (occurrence: None)
  Receive Date: 20041021
  Receipt Date: 20041013
  Transmission Date: 20050328
  Serious: Yes (Life-Threatening)
  Sender: FDA-Public Use
  Company Number: F01200403178

PATIENT
  Age: 60 Year
  Sex: Male

DRUGS (2)
  1. OXALIPLATIN [Suspect]
     Indication: NON-SMALL CELL LUNG CANCER
     Dosage: 235 MG Q3W (CUMULATIVE DOSE: 705 MG) INTRAVENOUS NOS
     Route: 042
     Dates: start: 20040909, end: 20040909
  2. GEMCITABINE - SOLUTION - 2262 MG [Suspect]
     Indication: NON-SMALL CELL LUNG CANCER
     Dosage: 2262 MG ON DAY 1 AND DAY 8, Q3W (CUMULATIVE DOSE: 13572 MG) INTRAVENOUS NOS
     Route: 042
     Dates: start: 20040916, end: 20040916

REACTIONS (5)
  - CYTOLYTIC HEPATITIS [None]
  - CYTOMEGALOVIRUS TEST POSITIVE [None]
  - HEPATOMEGALY [None]
  - PYREXIA [None]
  - THROMBOCYTOPENIA [None]
